FAERS Safety Report 10592586 (Version 2)
Quarter: 2015Q1

REPORT INFORMATION
  Report Type: Spontaneous
  Country: US (occurrence: US)
  Receive Date: 20141119
  Receipt Date: 20150107
  Transmission Date: 20150720
  Serious: No
  Sender: FDA-Public Use
  Company Number: US-PFIZER INC-2014315892

PATIENT
  Age: 83 Year
  Sex: Male

DRUGS (8)
  1. ATORVASTATIN [Concomitant]
     Active Substance: ATORVASTATIN
     Dosage: UNK
     Dates: start: 2007
  2. TIKOSYN [Suspect]
     Active Substance: DOFETILIDE
     Indication: ATRIAL FIBRILLATION
     Dosage: 0.50 MG, 2X/DAY
     Dates: end: 2014
  3. METOPROLOL [Suspect]
     Active Substance: METOPROLOL
     Indication: ATRIAL FLUTTER
  4. DILTIAZEM [Suspect]
     Active Substance: DILTIAZEM
     Indication: ATRIAL FIBRILLATION
     Dosage: UNK
     Dates: start: 2007, end: 2010
  5. TIKOSYN [Suspect]
     Active Substance: DOFETILIDE
     Indication: ATRIAL FLUTTER
  6. METOPROLOL [Suspect]
     Active Substance: METOPROLOL
     Indication: ATRIAL FIBRILLATION
     Dosage: 50 MG, TWICE A DAY
     Dates: start: 2007
  7. METOPROLOL [Suspect]
     Active Substance: METOPROLOL
     Indication: PROPHYLAXIS
  8. DILTIAZEM [Suspect]
     Active Substance: DILTIAZEM
     Indication: ATRIAL FLUTTER

REACTIONS (1)
  - Drug ineffective [Recovered/Resolved]

NARRATIVE: CASE EVENT DATE: 201402
